FAERS Safety Report 6933713-8 (Version None)
Quarter: 2010Q3

REPORT INFORMATION
  Report Type: 
  Country: None (occurrence: None)
  Receive Date: 20100820
  Receipt Date: 20100810
  Transmission Date: 20110219
  Serious: Yes (Other)
  Sender: FDA-Public Use
  Company Number: CA-JNJFOC-20100804064

PATIENT
  Sex: Female
  Weight: 48 kg

DRUGS (6)
  1. REMICADE [Suspect]
     Indication: CROHN'S DISEASE
     Route: 042
  2. REMICADE [Suspect]
     Dosage: WEEK 0, 2, 6
     Route: 042
  3. ASTHMA INHALER [Concomitant]
     Indication: ASTHMA
  4. BENADRYL [Concomitant]
     Indication: PREMEDICATION
     Dosage: PREMEDICATION
     Route: 048
  5. HYDROCORTISONE [Concomitant]
     Indication: PREMEDICATION
     Dosage: PREMEDICATION
     Route: 042
  6. ACETAMINOPHEN [Concomitant]
     Indication: PREMEDICATION

REACTIONS (3)
  - COLECTOMY TOTAL [None]
  - ILEOSTOMY [None]
  - PAIN IN EXTREMITY [None]
